FAERS Safety Report 10187683 (Version 1)
Quarter: 2014Q2

REPORT INFORMATION
  Report Type: Spontaneous
  Country: US (occurrence: US)
  Receive Date: 20140522
  Receipt Date: 20140522
  Transmission Date: 20141212
  Serious: No
  Sender: FDA-Public Use
  Company Number: US-SANOFI-AVENTIS-2013SA086340

PATIENT
  Age: 78 Year
  Sex: Male

DRUGS (3)
  1. SOLOSTAR [Suspect]
     Indication: TYPE 2 DIABETES MELLITUS
  2. LANTUS SOLOSTAR [Suspect]
     Indication: TYPE 2 DIABETES MELLITUS
     Dosage: THERAPY START DATE: 3-4 YEARS, DOSING: 38 UNITS/ 62 UNITS
     Route: 058
  3. HUMALOG [Concomitant]

REACTIONS (3)
  - Chills [Unknown]
  - Movement disorder [Unknown]
  - Injection site bruising [Not Recovered/Not Resolved]
